FAERS Safety Report 4927784-8 (Version None)
Quarter: 2006Q1

REPORT INFORMATION
  Report Type: 
  Country: None (occurrence: None)
  Receive Date: 20060228
  Receipt Date: 20050125
  Transmission Date: 20060701
  Serious: No
  Sender: FDA-Public Use
  Company Number: US-GLAXOSMITHKLINE-A0542192A

PATIENT
  Age: 68 Year
  Sex: Female

DRUGS (8)
  1. ALKERAN [Suspect]
     Dosage: 6MG PER DAY
     Route: 048
     Dates: start: 20050124
  2. PREDNISONE [Concomitant]
  3. INSULIN [Concomitant]
  4. PREVACID [Concomitant]
  5. TOPROL [Concomitant]
  6. UNKNOWN MEDICATION [Concomitant]
  7. ADVAIR DISKUS 100/50 [Concomitant]
  8. ALBUTEROL [Concomitant]

REACTIONS (2)
  - DYSPNOEA [None]
  - FATIGUE [None]
